FAERS Safety Report 6079362-8 (Version None)
Quarter: 2009Q1

REPORT INFORMATION
  Report Type: 
  Country: None (occurrence: None)
  Receive Date: 20090216
  Receipt Date: 20090213
  Transmission Date: 20090719
  Serious: Yes (Death, Hospitalization, Other)
  Sender: FDA-Public Use
  Company Number: US-ELI_LILLY_AND_COMPANY-US200812002847

PATIENT
  Age: 52 Year
  Sex: Female

DRUGS (9)
  1. GEMZAR [Suspect]
     Indication: OVARIAN CANCER RECURRENT
     Dosage: 1000 MG/M2, DAYS 1 AND 15
  2. CISPLATIN [Concomitant]
     Indication: OVARIAN CANCER RECURRENT
     Dosage: 30 MG/M2, DAYS 1 AND 15
  3. BEVACIZUMAB [Concomitant]
     Indication: OVARIAN CANCER RECURRENT
     Dosage: 10 MG/M2, DAYS 1 AND 15
  4. ZOFRAN [Concomitant]
     Indication: PREMEDICATION
  5. DEXAMETHASONE [Concomitant]
     Indication: PREMEDICATION
  6. LORAZEPAM [Concomitant]
     Indication: PREMEDICATION
  7. METOCLOPRAMIDE [Concomitant]
     Indication: PROPHYLAXIS OF NAUSEA AND VOMITING
  8. DEXAMETHASONE [Concomitant]
     Indication: PROPHYLAXIS OF NAUSEA AND VOMITING
  9. ATIVAN [Concomitant]
     Indication: PROPHYLAXIS OF NAUSEA AND VOMITING

REACTIONS (7)
  - CEREBROVASCULAR ACCIDENT [None]
  - DISEASE PROGRESSION [None]
  - HYPERCALCAEMIA [None]
  - INTERNATIONAL NORMALISED RATIO INCREASED [None]
  - METASTASES TO BONE [None]
  - SPINAL CORD COMPRESSION [None]
  - THROMBOCYTOPENIA [None]
